FAERS Safety Report 4489875-8 (Version None)
Quarter: 2004Q4

REPORT INFORMATION
  Report Type: 
  Country: None (occurrence: None)
  Receive Date: 20041026
  Receipt Date: 20041013
  Transmission Date: 20050328
  Serious: Yes (Hospitalization)
  Sender: FDA-Public Use
  Company Number: 2004077781

PATIENT
  Age: 79 Year
  Sex: Female

DRUGS (5)
  1. GABAPENTIN [Suspect]
     Indication: RADICULOPATHY
     Dosage: 900 MG (300 MG, 3 IN 1 D), ORAL
     Route: 048
     Dates: start: 20040101, end: 20040101
  2. OMEPRAZOLE [Concomitant]
  3. NIFEDIPINE [Concomitant]
  4. ACETAMINOPHEN [Concomitant]
  5. FENTANYL [Concomitant]

REACTIONS (4)
  - AGRANULOCYTOSIS [None]
  - ASTHENIA [None]
  - LEUKOPENIA [None]
  - PYREXIA [None]
